FAERS Safety Report 4700310-4 (Version None)
Quarter: 2005Q2

REPORT INFORMATION
  Report Type: 
  Country: None (occurrence: None)
  Receive Date: 20050627
  Receipt Date: 20030407
  Transmission Date: 20051028
  Serious: Yes (Disabling)
  Sender: FDA-Public Use
  Company Number: US-MERCK-0304USA00766

PATIENT
  Age: 42 Year
  Sex: Male
  Weight: 102 kg

DRUGS (3)
  1. VIOXX [Suspect]
     Indication: BACK PAIN
     Route: 048
     Dates: start: 20010101
  2. VIOXX [Suspect]
     Route: 048
     Dates: start: 20010101
  3. ADVIL [Concomitant]
     Indication: BACK PAIN
     Route: 065
     Dates: start: 19960101

REACTIONS (4)
  - INJURY [None]
  - MYOCARDIAL INFARCTION [None]
  - RHINITIS [None]
  - SNORING [None]
